FAERS Safety Report 5782082-8 (Version None)
Quarter: 2008Q2

REPORT INFORMATION
  Report Type: 
  Country: None (occurrence: None)
  Receive Date: 20080623
  Receipt Date: 20080611
  Transmission Date: 20081010
  Serious: Yes (Other)
  Sender: FDA-Public Use
  Company Number: US-BAYER-200811975BCC

PATIENT
  Age: 67 Year
  Sex: Male
  Weight: 84 kg

DRUGS (4)
  1. BAYER EXTRA STRENGTH BACK + BODY PAIN [Suspect]
     Indication: SCIATICA
     Route: 048
     Dates: start: 19770101
  2. BAYER ARTHRITIS REGIMEN [Suspect]
     Indication: SCIATICA
     Route: 048
     Dates: start: 19770101
  3. ASPIRIN [Suspect]
     Indication: SCIATICA
     Route: 048
     Dates: start: 19770101
  4. ASPIRIN [Suspect]
     Indication: SCIATICA
     Route: 048
     Dates: start: 19770101

REACTIONS (4)
  - COLON CANCER [None]
  - FREQUENT BOWEL MOVEMENTS [None]
  - HYPERTENSION [None]
  - RECTAL HAEMORRHAGE [None]
